FAERS Safety Report 14632812 (Version 1)
Quarter: 2018Q1

REPORT INFORMATION
  Report Type: Spontaneous
  Country: US (occurrence: US)
  Receive Date: 20180313
  Receipt Date: 20180313
  Transmission Date: 20180509
  Serious: No
  Sender: FDA-Public Use
  Company Number: US-CELLTRION INC.-2017US012925

PATIENT

DRUGS (1)
  1. INFLECTRA [Suspect]
     Active Substance: INFLIXIMAB-DYYB
     Indication: COLITIS ULCERATIVE
     Dosage: 400 MG PER INFUSION (AT 0, 2 AND 6 WEEKS THEN EVERY 8 WEEKS)
     Route: 065
     Dates: start: 20171002, end: 20171002

REACTIONS (1)
  - Drug prescribing error [Unknown]
